FAERS Safety Report 15211952 (Version 1)
Quarter: 2018Q3

REPORT INFORMATION
  Report Type: Spontaneous
  Country: US (occurrence: US)
  Receive Date: 20180702
  Receipt Date: 20180702
  Transmission Date: 20181010
  Serious: Yes (Death, Other)
  Sender: FDA-Public Use
  Company Number: None

PATIENT
  Age: 60 Year
  Sex: Female
  Weight: 68.04 kg

DRUGS (1)
  1. PICATO [Suspect]
     Active Substance: INGENOL MEBUTATE
     Indication: BASAL CELL CARCINOMA
     Dates: start: 20180629

REACTIONS (9)
  - Paraesthesia oral [None]
  - Eye swelling [None]
  - Photophobia [None]
  - Headache [None]
  - Anxiety [None]
  - Rhinorrhoea [None]
  - Eye pain [None]
  - Lacrimation increased [None]
  - Sinus pain [None]

NARRATIVE: CASE EVENT DATE: 20180630
